FAERS Safety Report 7265218-1 (Version None)
Quarter: 2011Q1

REPORT INFORMATION
  Report Type: 
  Country: None (occurrence: None)
  Receive Date: 20110131
  Receipt Date: 20110119
  Transmission Date: 20110831
  Serious: Yes (Other)
  Sender: FDA-Public Use
  Company Number: US-JNJFOC-20110105752

PATIENT
  Age: 64 Year
  Sex: Male
  Weight: 95.26 kg

DRUGS (3)
  1. TYLENOL ALLERGY MULTI-SYMPTOM RAPID RELEASE [Suspect]
     Indication: HEADACHE
     Dosage: 5-8 PILLS A DAY, EVERYDAY
     Route: 048
  2. TYLENOL ALLERGY MULTI-SYMPTOM RAPID RELEASE [Suspect]
     Indication: SINUS DISORDER
     Dosage: 5-8 PILLS A DAY, EVERYDAY
     Route: 048
  3. TYLENOL ALLERGY MULTI-SYMPTOM RAPID RELEASE [Suspect]
     Indication: MIGRAINE
     Dosage: 5-8 PILLS A DAY, EVERYDAY
     Route: 048

REACTIONS (4)
  - HEPATIC STEATOSIS [None]
  - HEPATITIS C [None]
  - LIVER INJURY [None]
  - INTENTIONAL OVERDOSE [None]
